FAERS Safety Report 22211044 (Version 1)
Quarter: 2023Q2

REPORT INFORMATION
  Report Type: Spontaneous
  Country: US (occurrence: US)
  Receive Date: 20230414
  Receipt Date: 20230414
  Transmission Date: 20230721
  Serious: No
  Sender: FDA-Public Use
  Company Number: US-HETERO-HET2023US00885

PATIENT
  Sex: Male

DRUGS (1)
  1. LOSARTAN [Suspect]
     Active Substance: LOSARTAN
     Indication: Product used for unknown indication
     Dosage: 12.5 MG (HALF) OF 25 MG
     Route: 065
     Dates: start: 20230218

REACTIONS (5)
  - Wrong technique in product usage process [Unknown]
  - Muscular weakness [Unknown]
  - Fatigue [Unknown]
  - Sluggishness [Unknown]
  - Dizziness [Unknown]

NARRATIVE: CASE EVENT DATE: 20230218
